FAERS Safety Report 13615842 (Version 1)
Quarter: 2017Q2

REPORT INFORMATION
  Report Type: Spontaneous
  Country: DE (occurrence: DE)
  Receive Date: 20170606
  Receipt Date: 20170606
  Transmission Date: 20170830
  Serious: Yes (Other)
  Sender: FDA-Public Use
  Company Number: DE-PFIZER INC-2017242971

PATIENT
  Sex: Male

DRUGS (4)
  1. CEFUROXIM [Concomitant]
     Active Substance: CEFUROXIME
     Dosage: 500 MG, 2X/DAY
  2. METRONIDAZOLE. [Concomitant]
     Active Substance: METRONIDAZOLE
     Dosage: 400 MG, 3X/DAY
  3. LINEZOLID. [Suspect]
     Active Substance: LINEZOLID
     Indication: BRAIN ABSCESS
     Dosage: 600 MG, 2X/DAY
     Route: 048
     Dates: start: 20170403
  4. PANTOPRAZOL [Concomitant]
     Active Substance: PANTOPRAZOLE SODIUM
     Dosage: 40 MG ONCE DAILY

REACTIONS (4)
  - Anaemia [Unknown]
  - Dysgeusia [Unknown]
  - Tongue discolouration [Unknown]
  - Diabetes mellitus [Unknown]
